FAERS Safety Report 7613196-5 (Version None)
Quarter: 2011Q3

REPORT INFORMATION
  Report Type: 
  Country: None (occurrence: None)
  Receive Date: 20110708
  Receipt Date: 20110623
  Transmission Date: 20111222
  Serious: Yes (Other)
  Sender: FDA-Public Use
  Company Number: 2011MA007153

PATIENT
  Age: 59 Year
  Sex: Female

DRUGS (1)
  1. PAREGORIC LIQUID USP (ALPHARMA) (PAREGORIC) [Suspect]
     Indication: PAIN
     Dosage: 28.5 MG;QD;INTH
     Route: 037

REACTIONS (5)
  - RESPIRATORY DISORDER [None]
  - RAPID EYE MOVEMENTS SLEEP ABNORMAL [None]
  - SLEEP DISORDER [None]
  - HYPERSOMNIA [None]
  - SLEEP APNOEA SYNDROME [None]
